FAERS Safety Report 4954246-4 (Version None)
Quarter: 2006Q1

REPORT INFORMATION
  Report Type: 
  Country: None (occurrence: None)
  Receive Date: 20060327
  Receipt Date: 20050315
  Transmission Date: 20060701
  Serious: Yes (Hospitalization)
  Sender: FDA-Public Use
  Company Number: US-MERCK-0503USA03134

PATIENT
  Sex: Female
  Weight: 59 kg

DRUGS (4)
  1. VIOXX [Suspect]
     Indication: ARTHRITIS
     Route: 048
     Dates: start: 20010821, end: 20031212
  2. LEVOXYL [Concomitant]
     Route: 065
  3. PROZAC [Concomitant]
     Route: 065
  4. EVISTA [Concomitant]
     Route: 065

REACTIONS (11)
  - CARDIAC FAILURE [None]
  - CEREBROVASCULAR ACCIDENT [None]
  - ELECTROCARDIOGRAM T WAVE ABNORMAL [None]
  - HEPATOCELLULAR DAMAGE [None]
  - HYPERTENSION [None]
  - MUSCULOSKELETAL DISORDER [None]
  - MYOCARDIAL INFARCTION [None]
  - POLYTRAUMATISM [None]
  - RENAL IMPAIRMENT [None]
  - THROMBOSIS [None]
  - ULCER [None]
